FAERS Safety Report 12503224 (Version 1)
Quarter: 2016Q2

REPORT INFORMATION
  Report Type: Report from Study
  Country: US (occurrence: US)
  Receive Date: 20160628
  Receipt Date: 20160628
  Transmission Date: 20160815
  Serious: Yes (Hospitalization, Other)
  Sender: FDA-Public Use
  Company Number: US-ACCORD-041903

PATIENT
  Age: 67 Year
  Sex: Female

DRUGS (4)
  1. FLUOROURACIL. [Suspect]
     Active Substance: FLUOROURACIL
     Indication: PANCREATIC CARCINOMA METASTATIC
     Dosage: RECEIVED 2750 MG IN CYCLE ONE, FOLLOWED BY A REDUCED DOSE OF 1950 MG FOR CYCLE 2.
     Route: 042
  2. VISTOGARD [Suspect]
     Active Substance: URIDINE TRIACETATE
     Indication: TOXICITY TO VARIOUS AGENTS
     Dosage: URIDINE TRIACETATE
     Route: 048
  3. FUROSEMIDE. [Concomitant]
     Active Substance: FUROSEMIDE
  4. CAPTOPRIL. [Concomitant]
     Active Substance: CAPTOPRIL

REACTIONS (5)
  - Periorbital oedema [Recovered/Resolved]
  - Thrombocytopenia [Recovered/Resolved]
  - Mucosal inflammation [Recovered/Resolved]
  - Haemoglobin decreased [Unknown]
  - Exfoliative rash [Recovered/Resolved]
